FAERS Safety Report 14232703 (Version 1)
Quarter: 2017Q4

REPORT INFORMATION
  Report Type: Other
  Country: JP (occurrence: JP)
  Receive Date: 20171128
  Receipt Date: 20171128
  Transmission Date: 20180321
  Serious: Yes (Disabling, Other)
  Sender: FDA-Public Use
  Company Number: JP-LUNDBECK-DKLU2036942

PATIENT
  Age: 9 Year
  Sex: Female

DRUGS (4)
  1. LAMOTRIGINE. [Suspect]
     Active Substance: LAMOTRIGINE
     Indication: PARTIAL SEIZURES
     Route: 065
  2. CARBAMAZEPINE. [Suspect]
     Active Substance: CARBAMAZEPINE
     Indication: PARTIAL SEIZURES
     Route: 065
  3. MYSTAN [Suspect]
     Active Substance: CLOBAZAM
     Indication: EPILEPSY
     Route: 065
  4. LEVETIRACETAM. [Suspect]
     Active Substance: LEVETIRACETAM
     Indication: PARTIAL SEIZURES
     Route: 065

REACTIONS (6)
  - Vomiting [Unknown]
  - Hallucination [Unknown]
  - Intellectual disability [Unknown]
  - Headache [Unknown]
  - Seizure [Unknown]
  - Drug ineffective [Unknown]
